FAERS Safety Report 6181657-4 (Version None)
Quarter: 2009Q2

REPORT INFORMATION
  Report Type: 
  Country: None (occurrence: None)
  Receive Date: 20090506
  Receipt Date: 20090428
  Transmission Date: 20091009
  Serious: Yes (Life-Threatening)
  Sender: FDA-Public Use
  Company Number: B0565911A

PATIENT
  Age: 85 Year
  Sex: Female
  Weight: 43 kg

DRUGS (9)
  1. VALTREX [Suspect]
     Indication: HERPES ZOSTER
     Dosage: 1000MG THREE TIMES PER DAY
     Route: 048
     Dates: start: 20080617, end: 20080625
  2. TEGRETOL [Suspect]
     Indication: DRUG USE FOR UNKNOWN INDICATION
     Dosage: 200MG FOUR TIMES PER DAY
     Route: 048
     Dates: end: 20080625
  3. CARBAMAZEPINE [Concomitant]
     Route: 048
  4. ONEALFA [Concomitant]
     Dosage: 1MCG PER DAY
     Route: 048
  5. DIOVAN [Concomitant]
     Dosage: 80MG PER DAY
     Route: 048
  6. BERIZYM [Concomitant]
     Route: 048
  7. GASTER D [Concomitant]
     Dosage: 10MG PER DAY
     Route: 048
  8. CEROCRAL [Concomitant]
     Route: 048
  9. BIOFERMIN [Concomitant]
     Route: 048

REACTIONS (5)
  - BLOOD PRESSURE DECREASED [None]
  - INFECTION [None]
  - NEUTROPENIA [None]
  - PYREXIA [None]
  - SHOCK [None]
